FAERS Safety Report 25396505 (Version 1)
Quarter: 2025Q2

REPORT INFORMATION
  Report Type: Report from Study
  Country: US (occurrence: US)
  Receive Date: 20250604
  Receipt Date: 20250604
  Transmission Date: 20250716
  Serious: Yes (Other)
  Sender: ABBVIE
  Company Number: US-ABBVIE-6235664

PATIENT
  Sex: Male

DRUGS (2)
  1. VENCLEXTA [Suspect]
     Active Substance: VENETOCLAX
     Indication: Acute myelomonocytic leukaemia
     Dosage: TAKE 1 TABLET BY MOUTH DAILY WITH FOOD AND WATER FOR 21 DAYS ON THEN 7 DAYS OFF EVERY 28 DAYS?STR...
     Route: 048
  2. VENCLEXTA [Suspect]
     Active Substance: VENETOCLAX
     Indication: Acute myelomonocytic leukaemia
     Dosage: TAKE 1 TABLET BY MOUTH DAILY WITH FOOD AND WATER FOR 21 DAYS ON THEN 7 DAYS OFF EVERY 28 DAYS?STR...
     Route: 048

REACTIONS (2)
  - Haemoglobin decreased [Unknown]
  - Platelet count decreased [Unknown]
